FAERS Safety Report 23843357 (Version 1)
Quarter: 2024Q2

REPORT INFORMATION
  Report Type: Spontaneous
  Country: HR (occurrence: HR)
  Receive Date: 20240510
  Receipt Date: 20240510
  Transmission Date: 20240716
  Serious: Yes (Other)
  Sender: FDA-Public Use
  Company Number: None

PATIENT
  Age: 56 Year
  Sex: Male
  Weight: 84 kg

DRUGS (2)
  1. ATORVASTATIN [Suspect]
     Active Substance: ATORVASTATIN
     Indication: Product used for unknown indication
     Route: 048
     Dates: start: 202403, end: 202403
  2. ACETAMINOPHEN\TRAMADOL HYDROCHLORIDE [Suspect]
     Active Substance: ACETAMINOPHEN\TRAMADOL HYDROCHLORIDE
     Indication: Product used for unknown indication
     Dosage: 1 DF = 1 TABLET = 37.5 MG TRAMADOL CHLORIDE AND 325 MG PARACETAMOL:
     Route: 048
     Dates: start: 202403, end: 202403

REACTIONS (3)
  - Intentional overdose [Unknown]
  - Suicide attempt [Unknown]
  - No adverse event [Unknown]

NARRATIVE: CASE EVENT DATE: 20240301
